FAERS Safety Report 6453891-7 (Version None)
Quarter: 2009Q4

REPORT INFORMATION
  Report Type: 
  Country: None (occurrence: None)
  Receive Date: 20091124
  Receipt Date: 20091118
  Transmission Date: 20100525
  Serious: Yes (Hospitalization)
  Sender: FDA-Public Use
  Company Number: KR-ASTRAZENECA-2009SE27530

PATIENT
  Age: 65 Year
  Sex: Female

DRUGS (6)
  1. ATACAND HCT [Suspect]
     Indication: HYPERTENSION
  2. LITHIUM [Suspect]
  3. QUETIAPINE [Concomitant]
  4. DIGOXIN [Concomitant]
  5. FUROSEMID [Concomitant]
  6. WARFARIN SODIUM [Concomitant]

REACTIONS (1)
  - THERAPEUTIC AGENT TOXICITY [None]
